FAERS Safety Report 6408963-X (Version None)
Quarter: 2009Q4

REPORT INFORMATION
  Report Type: 
  Country: None (occurrence: None)
  Receive Date: 20091019
  Receipt Date: 20091006
  Transmission Date: 20100525
  Serious: Yes (Hospitalization)
  Sender: FDA-Public Use
  Company Number: 2009AL006469

PATIENT
  Age: 6 Month
  Sex: Male
  Weight: 8.6 kg

DRUGS (1)
  1. CLOBETASOL PROPIONATE OINTMENT USP, 0.05% (ALPHARMA) (CLOBETASOL PROPI [Suspect]
     Indication: DRY SKIN
     Dosage: TID; TOP
     Route: 061

REACTIONS (6)
  - BLOOD CORTISOL DECREASED [None]
  - BLOOD UREA INCREASED [None]
  - CUSHING'S SYNDROME [None]
  - PLATELET COUNT INCREASED [None]
  - RASH PUSTULAR [None]
  - RESPIRATORY TRACT INFECTION [None]
